FAERS Safety Report 7583387-0 (Version None)
Quarter: 2011Q2

REPORT INFORMATION
  Report Type: 
  Country: None (occurrence: None)
  Receive Date: 20110628
  Receipt Date: 20110628
  Transmission Date: 20111010
  Serious: No
  Sender: FDA-Public Use
  Company Number: None

PATIENT
  Age: 80 Year
  Sex: Male

DRUGS (12)
  1. MORPHINE [Concomitant]
  2. ALPHAGAN [Concomitant]
  3. ZESTRIL [Concomitant]
  4. REVLIMID [Concomitant]
  5. DECADRON [Concomitant]
  6. REVLIMID [Suspect]
     Indication: MULTIPLE MYELOMA
     Dosage: 10MG QD 21D/28D ORALLY
     Route: 048
     Dates: start: 20100101, end: 20110601
  7. AREDIA [Concomitant]
  8. PERCOCET [Concomitant]
  9. METFORMIN HCL [Concomitant]
  10. ZOCOR [Concomitant]
  11. HYDROCHLOROTHIAZIDE [Concomitant]
  12. INSULIN [Concomitant]

REACTIONS (1)
  - PANCYTOPENIA [None]
